FAERS Safety Report 16109368 (Version 1)
Quarter: 2019Q1

REPORT INFORMATION
  Report Type: Spontaneous
  Country: US (occurrence: US)
  Receive Date: 20190324
  Receipt Date: 20190324
  Transmission Date: 20190418
  Serious: No
  Sender: FDA-Public Use
  Company Number: US-APOTEX-2019AP008746

PATIENT
  Age: 73 Year
  Sex: Female

DRUGS (1)
  1. NICOTINE. [Suspect]
     Active Substance: NICOTINE
     Indication: SMOKING CESSATION THERAPY
     Dosage: 21 MG, PER DAY
     Route: 062
     Dates: start: 20190218, end: 20190222

REACTIONS (4)
  - Rash erythematous [Not Recovered/Not Resolved]
  - Product complaint [Unknown]
  - Rash pruritic [Not Recovered/Not Resolved]
  - Rash [Not Recovered/Not Resolved]

NARRATIVE: CASE EVENT DATE: 20190219
